FAERS Safety Report 13955964 (Version 2)
Quarter: 2017Q3

REPORT INFORMATION
  Report Type: Spontaneous
  Country: US (occurrence: US)
  Receive Date: 20170911
  Receipt Date: 20170913
  Transmission Date: 20171128
  Serious: Yes (Other)
  Sender: FDA-Public Use
  Company Number: US-PFIZER INC-2017384606

PATIENT
  Age: 72 Year
  Sex: Female
  Weight: 56.7 kg

DRUGS (2)
  1. TOVIAZ [Suspect]
     Active Substance: FESOTERODINE FUMARATE
     Indication: HYPERTONIC BLADDER
     Dosage: 4MG TABLET, ONCE PER DAY
     Route: 048
     Dates: end: 20170902
  2. SIMVASTATIN. [Concomitant]
     Active Substance: SIMVASTATIN
     Indication: BUNDLE BRANCH BLOCK LEFT
     Dosage: 20MG CAPSULE, DAILY
     Route: 048
     Dates: start: 2016

REACTIONS (1)
  - Angle closure glaucoma [Not Recovered/Not Resolved]

NARRATIVE: CASE EVENT DATE: 20170505
